FAERS Safety Report 9125674 (Version 1)
Quarter: 2013Q1

REPORT INFORMATION
  Report Type: Spontaneous
  Country: DE (occurrence: DE)
  Receive Date: 20130227
  Receipt Date: 20130227
  Transmission Date: 20140127
  Serious: Yes (Congenital Anomaly)
  Sender: FDA-Public Use
  Company Number: GXKR2013DE000961

PATIENT
  Sex: 0

DRUGS (12)
  1. MELPERONE [Suspect]
     Dosage: MATERNAL DOSE: 200 MG/D/TILL WEEK 5
     Route: 064
  2. MELPERONE [Suspect]
     Dosage: MATERNAL DOSE: 100 MG/D WK 5-7
     Route: 064
  3. MELPERONE [Suspect]
     Dosage: MATERNAL DOSE: 50 MG/D WK 7-28
     Route: 064
  4. MELPERONE [Suspect]
     Dosage: MATERNAL DOSE: 25 MG/D FROM WK 28 ON
     Route: 064
  5. VENLAFAXINE [Suspect]
     Dosage: MATERNAL DOSE: 300 [MG/D ]/ TILL WEEK 5
     Route: 064
  6. VENLAFAXINE [Suspect]
     Dosage: MATERNAL DOSE: 150 MG/D WK: 5-16
     Route: 064
  7. VENLAFAXINE [Suspect]
     Dosage: MATERNAL DOSE: 75 MG/D WK 16-28
     Route: 064
  8. VENLAFAXINE [Suspect]
     Dosage: MATERNAL DOSE: 37.5 MG/D FROM WK 28 ON
     Route: 064
  9. METFORMIN [Suspect]
     Dosage: MATERNAL DOSE: 2X850 MG/D, 0.-5. GW
     Route: 064
  10. FRAGMIN P [Concomitant]
     Dosage: MATERNAL DOSE: 5000 [IE/D ]
     Route: 064
  11. KADEFUNGIN [Concomitant]
     Indication: VULVOVAGINAL MYCOTIC INFECTION
     Dosage: MATERNAL DOSE: 3 COURSES IN MONTH 3, 5 AND 8
     Route: 064
  12. FEMIBION [Concomitant]
     Dosage: MATERNAL DOSE: 0.8 MG/D
     Route: 064

REACTIONS (10)
  - Fallot^s tetralogy [Recovered/Resolved with Sequelae]
  - Congenital uterine anomaly [Not Recovered/Not Resolved]
  - Anal atresia [Not Recovered/Not Resolved]
  - Congenital absence of bile ducts [Not Recovered/Not Resolved]
  - Persistent cloaca [Not Recovered/Not Resolved]
  - Spine malformation [Not Recovered/Not Resolved]
  - Atrial septal defect [Recovered/Resolved with Sequelae]
  - Right aortic arch [Recovered/Resolved with Sequelae]
  - Persistent left superior vena cava [Recovered/Resolved with Sequelae]
  - Foetal exposure during pregnancy [Unknown]
